FAERS Safety Report 16007479 (Version 1)
Quarter: 2019Q1

REPORT INFORMATION
  Report Type: Report from Study
  Country: US (occurrence: US)
  Receive Date: 20190226
  Receipt Date: 20190226
  Transmission Date: 20190418
  Serious: Yes (Hospitalization)
  Sender: FDA-Public Use
  Company Number: US-PFIZER INC-2019085987

PATIENT
  Age: 34 Year
  Sex: Male
  Weight: 68 kg

DRUGS (6)
  1. AVELUMAB [Suspect]
     Active Substance: AVELUMAB
     Indication: COLON CANCER
     Dosage: 695 MG, CYCLIC (ONCE EVERY TWO WEEKS)
     Route: 042
     Dates: start: 20181218
  2. BEVACIZUMAB. [Suspect]
     Active Substance: BEVACIZUMAB
     Indication: COLON CANCER
     Dosage: 348 MG, CYCLIC (ONCE EVERY TWO WEEKS)
     Route: 042
     Dates: start: 20181106
  3. OXALIPLATIN. [Suspect]
     Active Substance: OXALIPLATIN
     Indication: COLON CANCER
     Dosage: 156 MG, CYCLIC (ONCE EVERY TWO WEEKS)
     Route: 042
     Dates: start: 20181025
  4. ETBX-011 [Suspect]
     Active Substance: INVESTIGATIONAL PRODUCT
     Indication: COLON CANCER
     Dosage: 5 X 10E11
     Route: 058
     Dates: start: 20181218
  5. LEUCOVORIN CALCIUM. [Suspect]
     Active Substance: LEUCOVORIN CALCIUM
     Indication: COLON CANCER
     Dosage: 732 MG, CYCLIC (ONCE EVERY TWO WEEKS)
     Route: 042
     Dates: start: 20181025
  6. FLUOROURACIL. [Suspect]
     Active Substance: FLUOROURACIL
     Indication: COLON CANCER
     Dosage: 2200 MG, CYCLIC (ONCE EVERY TWO WEEKS)
     Route: 042
     Dates: start: 20181025

REACTIONS (1)
  - Sinus tachycardia [Unknown]

NARRATIVE: CASE EVENT DATE: 20190213
